FAERS Safety Report 10009703 (Version 2)
Quarter: 2014Q1

REPORT INFORMATION
  Report Type: Spontaneous
  Country: US (occurrence: US)
  Receive Date: 20140312
  Receipt Date: 20140312
  Transmission Date: 20141002
  Serious: Yes (Hospitalization, Other)
  Sender: FDA-Public Use
  Company Number: US-INCYTE CORPORATION-2012IN001938

PATIENT
  Age: 80 Year
  Sex: Male
  Weight: 97.51 kg

DRUGS (8)
  1. JAKAFI [Suspect]
     Indication: MYELOFIBROSIS
     Dosage: 10 MG, BID
     Route: 048
     Dates: start: 201207
  2. ARANESP [Concomitant]
  3. CASODEX [Concomitant]
  4. CALCIUM + VITAMIN D [Concomitant]
  5. FOLIC ACID [Concomitant]
  6. VITAMIN B12 [Concomitant]
  7. CENTRUM SILVER [Concomitant]
  8. LUPRON [Concomitant]

REACTIONS (1)
  - Haemoglobin decreased [Unknown]
